FAERS Safety Report 10844729 (Version 2)
Quarter: 2015Q2

REPORT INFORMATION
  Report Type: Spontaneous
  Country: US (occurrence: US)
  Receive Date: 20150220
  Receipt Date: 20150424
  Transmission Date: 20150821
  Serious: Yes (Other)
  Sender: FDA-Public Use
  Company Number: US-BAYER-2015-019633

PATIENT
  Age: 18 Year
  Sex: Female
  Weight: 72.56 kg

DRUGS (2)
  1. CYTOTEC [Concomitant]
     Active Substance: MISOPROSTOL
     Indication: INTRA-UTERINE CONTRACEPTIVE DEVICE INSERTION
     Dosage: 200 MG, BID
     Route: 048
  2. MIRENA [Suspect]
     Active Substance: LEVONORGESTREL
     Indication: CONTRACEPTION
     Dosage: 20 MCG/24HR, CONT
     Route: 015
     Dates: start: 20140710, end: 20141222

REACTIONS (6)
  - Device physical property issue [Recovered/Resolved]
  - Pelvic pain [Recovered/Resolved]
  - Embedded device [Recovered/Resolved]
  - Device difficult to use [Recovered/Resolved]
  - Urinary tract infection [Recovered/Resolved]
  - Medical device discomfort [Recovered/Resolved]

NARRATIVE: CASE EVENT DATE: 20141014
